FAERS Safety Report 7495242-5 (Version None)
Quarter: 2011Q2

REPORT INFORMATION
  Report Type: 
  Country: None (occurrence: None)
  Receive Date: 20110522
  Receipt Date: 20110509
  Transmission Date: 20111010
  Serious: Yes (Hospitalization)
  Sender: FDA-Public Use
  Company Number: US-ELI_LILLY_AND_COMPANY-US201007007091

PATIENT
  Age: 64 Year
  Sex: Female
  Weight: 56.236 kg

DRUGS (26)
  1. VITAMIN D [Concomitant]
     Dosage: UNK UNK, MONTHLY (1/M)
  2. LORATADINE [Concomitant]
     Dosage: 10 MG, QD
  3. MUCINEX [Concomitant]
     Dosage: 600 MG, BID
  4. BACITRACIN [Concomitant]
     Dosage: UNK, BID AS NEEDED
  5. TENORMIN [Concomitant]
     Dosage: 12.5 MG, QD
  6. CRESTOR [Concomitant]
     Dosage: 5 MG, QD
  7. SYMBICORT [Concomitant]
     Dosage: UNK, BID
  8. XANAX [Concomitant]
     Dosage: 0.25 MG, BID AS NEEDED
  9. ALUMINUM HYDROXIDE TAB [Concomitant]
     Dosage: UNK, Q4HRS PRN
  10. TYLENOL (CAPLET) [Concomitant]
     Dosage: 2 DF, Q4HRS PRN
  11. VENTOLIN [Concomitant]
     Dosage: UNK, PRN
  12. NOVOLOG [Concomitant]
  13. NEXIUM [Concomitant]
     Dosage: 40 MG, QD
  14. MOM [Concomitant]
     Dosage: UNK, Q4HRS PRN
  15. FORTEO [Suspect]
     Indication: OSTEOPOROSIS
     Dosage: 20 UG, DAILY (1/D)
     Route: 058
     Dates: start: 20100507
  16. IMODIUM MULTI-SYMPTOM RELIEF [Concomitant]
     Dosage: UNK, PRN
  17. TUMS                               /00108001/ [Concomitant]
     Dosage: 2 DF, Q4HRS PRN
  18. SPIRIVA [Concomitant]
     Dosage: 18 UG, QD
  19. FERROUS SULFATE TAB [Concomitant]
     Dosage: UNK, BID
  20. DUONEB [Concomitant]
     Dosage: 5 DF, DAILY AS NEEDED
  21. ROBITUSSIN DM                      /00288801/ [Concomitant]
     Dosage: UNK, Q4HRS PRN
  22. OXYGEN [Concomitant]
     Dosage: 2 L, MIN
  23. GLIPIZIDE [Concomitant]
     Dosage: 2.5 MG, QD
  24. PLAVIX [Concomitant]
     Dosage: 75 MG, QD
  25. SINGULAIR [Concomitant]
     Dosage: 10 MG, QD
  26. SERTRALINE HYDROCHLORIDE [Concomitant]
     Dosage: 50 MG, QD

REACTIONS (3)
  - CHRONIC OBSTRUCTIVE PULMONARY DISEASE [None]
  - INJECTION SITE PAIN [None]
  - PNEUMONIA [None]
